FAERS Safety Report 6142868-7 (Version None)
Quarter: 2009Q2

REPORT INFORMATION
  Report Type: 
  Country: None (occurrence: None)
  Receive Date: 20090403
  Receipt Date: 20090330
  Transmission Date: 20091009
  Serious: Yes (Hospitalization, Other)
  Sender: FDA-Public Use
  Company Number: US-ROXANE LABORATORIES, INC.-2009-RO-00301RO

PATIENT
  Age: 43 Year
  Sex: Male

DRUGS (6)
  1. HYDROMORPHONE HCL [Suspect]
     Indication: THORACIC OUTLET SYNDROME
  2. HYDROMORPHONE HCL [Suspect]
     Indication: PAIN
     Dosage: 10MG
     Route: 058
  3. KRATOM [Suspect]
     Indication: DRUG WITHDRAWAL SYNDROME
     Route: 048
  4. KRATOM [Suspect]
     Indication: PAIN
  5. MODAFINIL [Suspect]
     Indication: HYPERVIGILANCE
  6. BUPRENORPHINE/NALOXONE [Concomitant]
     Indication: DEPENDENCE
     Dosage: 16MG

REACTIONS (6)
  - DRUG ABUSE [None]
  - DRUG TOLERANCE INCREASED [None]
  - DRUG WITHDRAWAL SYNDROME [None]
  - GRAND MAL CONVULSION [None]
  - INCORRECT ROUTE OF DRUG ADMINISTRATION [None]
  - STRESS [None]
